FAERS Safety Report 5097624-8 (Version None)
Quarter: 2006Q3

REPORT INFORMATION
  Report Type: 
  Country: None (occurrence: None)
  Receive Date: 20060901
  Receipt Date: 20060816
  Transmission Date: 20061208
  Serious: Yes (Death, Hospitalization, Other)
  Sender: FDA-Public Use
  Company Number: ENTC2006-0238

PATIENT
  Age: 84 Year
  Sex: Male

DRUGS (1)
  1. STALEVO 100 [Suspect]
     Indication: PARKINSON'S DISEASE
     Dosage: 100 MG

REACTIONS (8)
  - BED REST [None]
  - CONDITION AGGRAVATED [None]
  - FALL [None]
  - FEMUR FRACTURE [None]
  - INFECTION [None]
  - LUNG DISORDER [None]
  - PARKINSON'S DISEASE [None]
  - RESPIRATORY TRACT INFECTION [None]
